FAERS Safety Report 24805547 (Version 1)
Quarter: 2025Q1

REPORT INFORMATION
  Report Type: Spontaneous
  Country: US (occurrence: US)
  Receive Date: 20250103
  Receipt Date: 20250103
  Transmission Date: 20250408
  Serious: Yes (Hospitalization)
  Sender: SK LIFE SCIENCE
  Company Number: US-SK LIFE SCIENCE, INC-SKPVG-2024-002903

PATIENT

DRUGS (2)
  1. XCOPRI [Suspect]
     Active Substance: CENOBAMATE
     Indication: Epilepsy
     Route: 065
     Dates: start: 20240312
  2. XCOPRI [Suspect]
     Active Substance: CENOBAMATE
     Dosage: 50 MILLIGRAM, DAILY
     Route: 065
     Dates: end: 20241128

REACTIONS (2)
  - Hospitalisation [Recovered/Resolved]
  - Product dose omission issue [Not Recovered/Not Resolved]

NARRATIVE: CASE EVENT DATE: 20241129
